FAERS Safety Report 10014641 (Version 5)
Quarter: 2014Q2

REPORT INFORMATION
  Report Type: Report from Study
  Country: DE (occurrence: DE)
  Receive Date: 20140317
  Receipt Date: 20140424
  Transmission Date: 20141212
  Serious: Yes (Death, Hospitalization)
  Sender: FDA-Public Use
  Company Number: DE-BRISTOL-MYERS SQUIBB COMPANY-20467809

PATIENT
  Age: 64 Year
  Sex: Male
  Weight: 66 kg

DRUGS (6)
  1. ERBITUX SOLN FOR INF [Suspect]
     Indication: SQUAMOUS CELL CARCINOMA OF HEAD AND NECK
     Dosage: 400MG/M2:14JAN-14JAN14?250MG/M2:19FEB-LAST INF 18FEB2014(35.7143MG/M2)?NO OF DOSE:2;?LAST26FEB14
     Route: 042
     Dates: start: 20140114, end: 20140226
  2. 5-FLUOROURACIL [Concomitant]
     Indication: SQUAMOUS CELL CARCINOMA OF HEAD AND NECK
     Dosage: INFUSION
     Route: 042
     Dates: start: 20140114, end: 20140219
  3. CISPLATIN FOR INJ [Concomitant]
     Indication: SQUAMOUS CELL CARCINOMA OF HEAD AND NECK
     Dosage: INFUSION
     Route: 042
     Dates: start: 20140114, end: 20140219
  4. KEVATRIL [Concomitant]
     Indication: PREMEDICATION
     Dates: start: 20140114, end: 20140114
  5. EMEND [Concomitant]
     Indication: PREMEDICATION
     Dates: start: 20140114, end: 20140114
  6. CORTICOSTEROID [Concomitant]
     Dosage: ORAL:8MG-14JAN2014 TO 21JAN2014
     Route: 042
     Dates: start: 20140114, end: 20140121

REACTIONS (9)
  - Large intestine perforation [Fatal]
  - Peritonitis [Fatal]
  - Respiratory failure [Fatal]
  - Megacolon [Unknown]
  - Septic shock [Unknown]
  - Suture related complication [Unknown]
  - Multi-organ failure [Unknown]
  - Hypoalbuminaemia [Not Recovered/Not Resolved]
  - Hypomagnesaemia [Not Recovered/Not Resolved]
